FAERS Safety Report 8618808-5 (Version None)
Quarter: 2012Q3

REPORT INFORMATION
  Report Type: 
  Country: None (occurrence: None)
  Receive Date: 20120824
  Receipt Date: 20120817
  Transmission Date: 20120928
  Serious: Yes (Other)
  Sender: FDA-Public Use
  Company Number: JP-JNJFOC-20120809521

PATIENT
  Age: 84 Year
  Sex: Female

DRUGS (3)
  1. GALANTAMINE HYDROBROMIDE [Suspect]
     Indication: DEMENTIA
     Route: 048
     Dates: start: 20120716, end: 20120812
  2. GALANTAMINE HYDROBROMIDE [Suspect]
     Route: 048
     Dates: start: 20120816
  3. GALANTAMINE HYDROBROMIDE [Suspect]
     Route: 048
     Dates: start: 20120813, end: 20120815

REACTIONS (3)
  - MUSCULAR WEAKNESS [None]
  - DRUG PRESCRIBING ERROR [None]
  - GASTROINTESTINAL DISORDER [None]
